FAERS Safety Report 25741114 (Version 1)
Quarter: 2025Q3

REPORT INFORMATION
  Report Type: Spontaneous
  Country: IL (occurrence: IL)
  Receive Date: 20250829
  Receipt Date: 20250829
  Transmission Date: 20251020
  Serious: Yes (Death, Other)
  Sender: JOHNSON AND JOHNSON
  Company Number: IL-JNJFOC-20250831150

PATIENT
  Sex: Female

DRUGS (1)
  1. TECLISTAMAB [Suspect]
     Active Substance: TECLISTAMAB
     Indication: Product used for unknown indication
     Route: 065

REACTIONS (4)
  - Death [Fatal]
  - Renal failure [Unknown]
  - Liver injury [Unknown]
  - Infection [Unknown]

NARRATIVE: CASE EVENT DATE: 20250101
